FAERS Safety Report 6298173-1 (Version None)
Quarter: 2009Q3

REPORT INFORMATION
  Report Type: 
  Country: None (occurrence: None)
  Receive Date: 20090805
  Receipt Date: 20090730
  Transmission Date: 20100115
  Serious: Yes (Hospitalization)
  Sender: FDA-Public Use
  Company Number: DE-AVENTIS-200911927DE

PATIENT
  Age: 54 Year
  Sex: Female

DRUGS (3)
  1. ARAVA [Suspect]
     Indication: RHEUMATOID ARTHRITIS
     Dosage: DOSE: NOT REPORTED
     Route: 048
     Dates: start: 20000501, end: 20090714
  2. OTHER CYTOKINES AND IMMUNOMODULATING AGENTS [Concomitant]
     Indication: DRUG USE FOR UNKNOWN INDICATION
     Dosage: DOSE: NOT REPORTED
     Dates: start: 20070101
  3. ATACAND [Concomitant]
     Indication: HYPERTENSION
     Dosage: DOSE: NOT REPORTED

REACTIONS (7)
  - BLOOD PRESSURE INCREASED [None]
  - CIRCULATORY COLLAPSE [None]
  - HEPATIC ENZYME INCREASED [None]
  - HYPERHIDROSIS [None]
  - HYPERTENSIVE CRISIS [None]
  - LOSS OF CONSCIOUSNESS [None]
  - PALLOR [None]
